FAERS Safety Report 4345237-5 (Version None)
Quarter: 2004Q2

REPORT INFORMATION
  Report Type: 
  Country: None (occurrence: None)
  Receive Date: 20040422
  Receipt Date: 20040422
  Transmission Date: 20050107
  Serious: Yes (Death, Hospitalization)
  Sender: FDA-Public Use
  Company Number: None

PATIENT
  Age: 29 Year
  Sex: Female
  Weight: 80.9 kg

DRUGS (15)
  1. FLUDARADBINE ATG 2250 MG X 2 040202-0403202 [Suspect]
     Indication: CHEMOTHERAPY
     Dosage: 56MG QD INTRAVENOUS
     Route: 042
     Dates: start: 20020330, end: 20020331
  2. CYTOXAN [Suspect]
     Indication: STEM CELL TRANSPLANT
     Dosage: 1.87G QD INTRAVENOUS
     Route: 042
     Dates: start: 20020401, end: 20020402
  3. POTASSIUM [Concomitant]
  4. KLONOPIN [Concomitant]
  5. DILAUDID [Concomitant]
  6. OXYCONTIN [Concomitant]
  7. CYPROHEPTADINE HCL [Concomitant]
  8. VALGANCICLOVIR [Concomitant]
  9. MAGNESIUM [Concomitant]
  10. CELLCEPT [Concomitant]
  11. PREDNISONE [Concomitant]
  12. PROCARDIA XL [Concomitant]
  13. REGLAN [Concomitant]
  14. ZOLOFT [Concomitant]
  15. PREVACID [Concomitant]

REACTIONS (3)
  - GRAFT VERSUS HOST DISEASE [None]
  - OBLITERATIVE BRONCHIOLITIS [None]
  - PNEUMONIA [None]
